FAERS Safety Report 6331459-0 (Version None)
Quarter: 2009Q3

REPORT INFORMATION
  Report Type: 
  Country: None (occurrence: None)
  Receive Date: 20090827
  Receipt Date: 20090812
  Transmission Date: 20100115
  Serious: Yes (Death)
  Sender: FDA-Public Use
  Company Number: FR-PFIZER INC-2009259980

PATIENT
  Age: 65 Year

DRUGS (10)
  1. HYDROXYZINE HCL [Suspect]
     Indication: AGITATION
     Dosage: 75 MG, UNK
     Route: 048
     Dates: end: 20090721
  2. HYDROXYZINE HCL [Suspect]
     Indication: ANXIETY
  3. BETAMETHASONE BENZOATE [Suspect]
     Indication: CHRONIC OBSTRUCTIVE PULMONARY DISEASE
     Dosage: 6 MG, UNK
     Route: 048
     Dates: end: 20090721
  4. TERCIAN [Suspect]
     Indication: ANXIETY
     Dosage: 20 DF, UNK
     Route: 048
  5. TERCIAN [Suspect]
     Indication: AGITATION
  6. LAROXYL [Suspect]
     Indication: AGITATION
     Dosage: 100 MG, UNK
     Route: 048
     Dates: end: 20090721
  7. LAROXYL [Suspect]
     Indication: ANXIETY
  8. STILNOX [Suspect]
     Indication: AGITATION
     Dosage: 10 MG, UNK
     Route: 048
     Dates: end: 20090721
  9. STILNOX [Suspect]
     Indication: ANXIETY
  10. ROCEPHIN [Suspect]
     Indication: PYELONEPHRITIS ACUTE
     Route: 051

REACTIONS (7)
  - BLOOD CREATINE PHOSPHOKINASE INCREASED [None]
  - C-REACTIVE PROTEIN INCREASED [None]
  - CYTOLYTIC HEPATITIS [None]
  - HYPERTHERMIA [None]
  - NEUROLEPTIC MALIGNANT SYNDROME [None]
  - PROTHROMBIN TIME RATIO DECREASED [None]
  - PYELONEPHRITIS ACUTE [None]
